FAERS Safety Report 7760209-6 (Version None)
Quarter: 2011Q3

REPORT INFORMATION
  Report Type: 
  Country: None (occurrence: None)
  Receive Date: 20110919
  Receipt Date: 20110913
  Transmission Date: 20111222
  Serious: Yes (Hospitalization)
  Sender: FDA-Public Use
  Company Number: US-GLAXOSMITHKLINE-A0891004A

PATIENT
  Age: 58 Year
  Sex: Male
  Weight: 93.6 kg

DRUGS (9)
  1. WELLBUTRIN [Concomitant]
  2. CAPOTEN [Concomitant]
  3. ZOCOR [Concomitant]
  4. LISINOPRIL [Concomitant]
  5. NEURONTIN [Concomitant]
  6. AVANDIA [Suspect]
     Indication: DIABETES MELLITUS
     Dosage: 4MG TWICE PER DAY
     Route: 048
     Dates: start: 19991001, end: 20050901
  7. AMARYL [Concomitant]
  8. INSULIN [Concomitant]
  9. PAXIL [Concomitant]

REACTIONS (2)
  - CORONARY ARTERY DISEASE [None]
  - MYOCARDIAL ISCHAEMIA [None]
